FAERS Safety Report 7002516-0 (Version None)
Quarter: 2010Q3

REPORT INFORMATION
  Report Type: 
  Country: None (occurrence: None)
  Receive Date: 20100920
  Receipt Date: 20100217
  Transmission Date: 20110219
  Serious: Yes (Other)
  Sender: FDA-Public Use
  Company Number: US-ASTRAZENECA-2009UW17688

PATIENT
  Age: 54 Year
  Sex: Male

DRUGS (5)
  1. SEROQUEL [Suspect]
     Route: 048
     Dates: start: 20060409
  2. PHENOBARBITAL [Concomitant]
     Route: 048
     Dates: start: 20060403
  3. WELLBUTRIN XL [Concomitant]
     Route: 048
     Dates: start: 20060404
  4. ZOLOFT [Concomitant]
     Dosage: 150 MG THREE TABLET DAILY IN MORNING
     Route: 048
     Dates: start: 20060404
  5. ABILIFY [Concomitant]
     Dosage: 15 MG HALF TABLET AT NIGHT
     Route: 048
     Dates: start: 20060406

REACTIONS (4)
  - DIABETES MELLITUS [None]
  - KETOACIDOSIS [None]
  - PANCREATITIS [None]
  - TYPE 2 DIABETES MELLITUS [None]
